FAERS Safety Report 10648220 (Version 3)
Quarter: 2015Q3

REPORT INFORMATION
  Report Type: Not Available
  Country: DE (occurrence: DE)
  Receive Date: 20141212
  Receipt Date: 20150722
  Transmission Date: 20151125
  Serious: Yes (Death, Other)
  Sender: FDA-Public Use
  Company Number: DE-CELGENE-062-21880-13080843

PATIENT

DRUGS (5)
  1. REVLIMID [Suspect]
     Active Substance: LENALIDOMIDE
     Indication: AMYLOIDOSIS
     Dosage: 10 MILLIGRAM
     Route: 048
  2. MELPHALAN [Suspect]
     Active Substance: MELPHALAN
     Indication: AMYLOIDOSIS
     Route: 048
  3. DEXAMETHASONE. [Suspect]
     Active Substance: DEXAMETHASONE
     Indication: AMYLOIDOSIS
     Route: 048
  4. HEPARIN LMW [Concomitant]
     Active Substance: UNSPECIFIED INGREDIENT
     Indication: THROMBOSIS PROPHYLAXIS
     Route: 065
  5. ASPIRIN. [Concomitant]
     Active Substance: ASPIRIN
     Indication: THROMBOSIS PROPHYLAXIS
     Dosage: 20 MILLIGRAM
     Route: 065

REACTIONS (18)
  - Death [Fatal]
  - Haematotoxicity [Unknown]
  - Renal impairment [Unknown]
  - Syncope [Unknown]
  - Gastrointestinal disorder [Unknown]
  - Anaemia [Unknown]
  - Infection [Fatal]
  - Sepsis [Fatal]
  - Cardiac failure [Fatal]
  - Acute kidney injury [Unknown]
  - Autonomic neuropathy [Unknown]
  - Deep vein thrombosis [Unknown]
  - Adverse event [Unknown]
  - Liver disorder [Unknown]
  - Thrombocytopenia [Unknown]
  - Amyloidosis [Fatal]
  - Neutropenia [Unknown]
  - Lymphopenia [Unknown]
